FAERS Safety Report 24647117 (Version 1)
Quarter: 2024Q4

REPORT INFORMATION
  Report Type: Spontaneous
  Country: GR (occurrence: GR)
  Receive Date: 20241121
  Receipt Date: 20241121
  Transmission Date: 20250114
  Serious: Yes (Hospitalization)
  Sender: JOHNSON AND JOHNSON
  Company Number: GR-TEVA-VS-3261373

PATIENT
  Age: 48 Year
  Sex: Female

DRUGS (1)
  1. INVEGA [Suspect]
     Active Substance: PALIPERIDONE
     Indication: Product used for unknown indication
     Route: 065

REACTIONS (5)
  - Euphoric mood [Unknown]
  - Neck pain [Unknown]
  - Logorrhoea [Unknown]
  - Headache [Unknown]
  - Chest pain [Unknown]
